FAERS Safety Report 7900721-X (Version None)
Quarter: 2011Q4

REPORT INFORMATION
  Report Type: 
  Country: None (occurrence: None)
  Receive Date: 20111104
  Receipt Date: 20111020
  Transmission Date: 20120403
  Serious: Yes (Death)
  Sender: FDA-Public Use
  Company Number: EU-2011-10190

PATIENT
  Age: 60 Year
  Sex: Female

DRUGS (1)
  1. SAMSCA [Suspect]
     Dosage: 15 MG MILLIGRAM(S), DAILY DOSE
     Dates: start: 20110801, end: 20110901

REACTIONS (2)
  - BRONCHIAL CARCINOMA [None]
  - NEOPLASM PROGRESSION [None]
